FAERS Safety Report 5330521-9 (Version None)
Quarter: 2007Q2

REPORT INFORMATION
  Report Type: 
  Country: None (occurrence: None)
  Receive Date: 20070521
  Receipt Date: 20070511
  Transmission Date: 20071010
  Serious: Yes (Other)
  Sender: FDA-Public Use
  Company Number: BR-PFIZER INC-2007039424

PATIENT
  Sex: Female

DRUGS (4)
  1. FRAGMIN [Suspect]
     Indication: PROPHYLAXIS
     Route: 030
  2. LOSARTAN POTASSIUM AND HYDROCHLOROTHIAZIDE [Concomitant]
     Route: 048
     Dates: start: 20050901, end: 20060601
  3. AAS [Concomitant]
     Route: 048
     Dates: start: 20060101, end: 20070101
  4. ASCORBIC ACID [Concomitant]
     Route: 048
     Dates: start: 20060101

REACTIONS (5)
  - ANAEMIA [None]
  - BLOOD PRESSURE DECREASED [None]
  - BLOOD PRESSURE INCREASED [None]
  - GASTROENTERITIS BACTERIAL [None]
  - INTENTIONAL DRUG MISUSE [None]
